FAERS Safety Report 25025677 (Version 1)
Quarter: 2025Q1

REPORT INFORMATION
  Report Type: Spontaneous
  Country: BG (occurrence: BG)
  Receive Date: 20250228
  Receipt Date: 20250228
  Transmission Date: 20250409
  Serious: Yes (Other)
  Sender: ENDO
  Company Number: BG-ENDO USA, INC.-2025-000682

PATIENT
  Age: 88 Year
  Sex: Male

DRUGS (4)
  1. TAMSULOSIN HYDROCHLORIDE [Suspect]
     Active Substance: TAMSULOSIN HYDROCHLORIDE
     Indication: Product used for unknown indication
     Route: 065
  2. TELMISARTAN [Suspect]
     Active Substance: TELMISARTAN
     Indication: Blood pressure management
     Route: 065
  3. TELMISARTAN [Suspect]
     Active Substance: TELMISARTAN
     Route: 065
  4. UNSPECIFIED INGREDIENT [Concomitant]
     Active Substance: UNSPECIFIED INGREDIENT
     Indication: Hypertension
     Route: 065

REACTIONS (2)
  - Keratoacanthoma [Recovered/Resolved]
  - Actinic keratosis [Recovered/Resolved]
